FAERS Safety Report 10734116 (Version 2)
Quarter: 2015Q3

REPORT INFORMATION
  Report Type: Spontaneous
  Country: US (occurrence: US)
  Receive Date: 20150123
  Receipt Date: 20150710
  Transmission Date: 20151125
  Serious: Yes (Death, Hospitalization, Other)
  Sender: FDA-Public Use
  Company Number: US-GLAXOSMITHKLINE-US2015GSK007893

PATIENT
  Age: 75 Year
  Sex: Male
  Weight: 97.7 kg

DRUGS (1)
  1. HYCAMTIN [Suspect]
     Active Substance: TOPOTECAN HYDROCHLORIDE
     Indication: LUNG NEOPLASM MALIGNANT
     Dosage: 5 MG, QD
     Route: 048
     Dates: start: 20140826

REACTIONS (10)
  - Death [Fatal]
  - Fatigue [Unknown]
  - Pain [Unknown]
  - Abdominal pain upper [Unknown]
  - Nausea [Unknown]
  - Asthenia [Unknown]
  - Constipation [Unknown]
  - Neutropenia [Unknown]
  - Thrombocytopenia [Unknown]
  - Anaemia [Unknown]

NARRATIVE: CASE EVENT DATE: 20150106
